FAERS Safety Report 6426006-9 (Version None)
Quarter: 2009Q4

REPORT INFORMATION
  Report Type: 
  Country: None (occurrence: None)
  Receive Date: 20091104
  Receipt Date: 20091031
  Transmission Date: 20100525
  Serious: Yes (Other)
  Sender: FDA-Public Use
  Company Number: US-ASTRAZENECA-2007UW18696

PATIENT
  Age: 14866 Day
  Sex: Male
  Weight: 94.3 kg

DRUGS (21)
  1. SEROQUEL [Suspect]
     Indication: SCHIZOPHRENIA
     Dosage: 100 MG - 300 MG
     Route: 048
     Dates: start: 20020101, end: 20040101
  2. SEROQUEL [Suspect]
     Dosage: 100-600 MG
     Route: 048
     Dates: start: 20030303
  3. SEROQUEL [Suspect]
     Route: 048
     Dates: start: 20030605
  4. ABILIFY [Concomitant]
     Dosage: 15 MG - 30 MG
     Dates: start: 20020101, end: 20030101
  5. HALDOL [Concomitant]
     Dates: start: 20030101, end: 20030101
  6. NAVANE [Concomitant]
     Dates: start: 20010101, end: 20030101
  7. DEPAKOTE [Concomitant]
     Dosage: 750-1000 MG
     Route: 048
  8. LOPID [Concomitant]
     Route: 048
  9. COGENTIN [Concomitant]
     Route: 048
  10. ATIVAN [Concomitant]
     Route: 048
  11. KLONOPIN [Concomitant]
     Route: 048
  12. TRAZODONE [Concomitant]
     Route: 048
  13. GLYBURIDE [Concomitant]
     Route: 048
  14. METFORMIN HCL [Concomitant]
     Route: 048
  15. VYTORIN [Concomitant]
     Dosage: 10/20 MG HALF A TABLET
     Dates: start: 20070922
  16. LIPITOR [Concomitant]
     Indication: HYPERLIPIDAEMIA
     Dates: start: 20030605
  17. CLOZAPINE [Concomitant]
     Dates: start: 20080505
  18. ROZEREM [Concomitant]
     Dates: start: 20080505
  19. FLUPHENAZINE [Concomitant]
     Dosage: 5 MG, 3 TABLETS AT BEDTIME
     Dates: start: 20080505
  20. FLURAZEPAM [Concomitant]
     Dosage: 15 MG, 2 TABLETS AT BEDTIME AS REQUIRED
     Dates: start: 19990202
  21. LOVAZA [Concomitant]
     Dates: start: 20070922

REACTIONS (3)
  - DIABETES MELLITUS [None]
  - DIABETIC NEUROPATHY [None]
  - HYPOGLYCAEMIA [None]
